FAERS Safety Report 6706953-0 (Version None)
Quarter: 2010Q2

REPORT INFORMATION
  Report Type: 
  Country: None (occurrence: None)
  Receive Date: 20100430
  Receipt Date: 20100430
  Transmission Date: 20101027
  Serious: Yes (Life-Threatening)
  Sender: FDA-Public Use
  Company Number: None

PATIENT
  Age: 63 Year
  Sex: Female
  Weight: 60 kg

DRUGS (1)
  1. PACLITAXEL [Suspect]
     Indication: LUNG NEOPLASM MALIGNANT
     Dosage: 100 MG ONE TIME IV
     Route: 042
     Dates: start: 20100426, end: 20100426

REACTIONS (4)
  - CHEST PAIN [None]
  - DYSPNOEA [None]
  - FLUSHING [None]
  - PRURITUS [None]
